FAERS Safety Report 7206039-5 (Version None)
Quarter: 2010Q4

REPORT INFORMATION
  Report Type: 
  Country: None (occurrence: None)
  Receive Date: 20101220
  Receipt Date: 20101203
  Transmission Date: 20110411
  Serious: Yes (Other)
  Sender: FDA-Public Use
  Company Number: AUR-APL-2010-03055

PATIENT
  Age: 61 Year
  Sex: Male

DRUGS (2)
  1. SIMVASTATIN [Suspect]
     Indication: HYPERCHOLESTEROLAEMIA
     Dosage: ^1DD^ 20MG- DAILY -
  2. PERINDOPRIL [Suspect]
     Indication: HYPERTENSION
     Dosage: ^1DD^ 4MG - DAILY -

REACTIONS (2)
  - ARTHRITIS [None]
  - TENDONITIS [None]
